FAERS Safety Report 7354535-2 (Version None)
Quarter: 2011Q1

REPORT INFORMATION
  Report Type: 
  Country: None (occurrence: None)
  Receive Date: 20110316
  Receipt Date: 20100602
  Transmission Date: 20110831
  Serious: Yes (Hospitalization, Other)
  Sender: FDA-Public Use
  Company Number: US-BAYER-200941342NA

PATIENT
  Sex: Female
  Weight: 170.52 kg

DRUGS (7)
  1. GLUCOPHAGE [Concomitant]
  2. LEXAPRO [Concomitant]
  3. TOPAMAX [Concomitant]
  4. IMITREX [Concomitant]
     Indication: HEADACHE
  5. ALBUTEROL [Concomitant]
     Indication: DYSPNOEA
  6. YAZ [Suspect]
     Indication: PRODUCT USED FOR UNKNOWN INDICATION
     Dates: start: 20060101
  7. YASMIN [Suspect]
     Indication: PRODUCT USED FOR UNKNOWN INDICATION
     Dosage: UNK
     Dates: start: 20060101, end: 20070124

REACTIONS (7)
  - VOMITING [None]
  - CHEST PAIN [None]
  - PAIN [None]
  - ABDOMINAL PAIN UPPER [None]
  - PULMONARY EMBOLISM [None]
  - DYSPNOEA [None]
  - NAUSEA [None]
